FAERS Safety Report 23237887 (Version 1)
Quarter: 2023Q4

REPORT INFORMATION
  Report Type: Spontaneous
  Country: IT (occurrence: IT)
  Receive Date: 20231128
  Receipt Date: 20231128
  Transmission Date: 20240109
  Serious: Yes (Other)
  Sender: FDA-Public Use
  Company Number: IT-AMGEN-ITASP2022230289

PATIENT
  Age: 1 Month
  Sex: Male

DRUGS (6)
  1. BLINATUMOMAB [Suspect]
     Active Substance: BLINATUMOMAB
     Indication: B precursor type acute leukaemia
     Dosage: UNK (2 CYCLES)
     Route: 065
  2. AZACITIDINE [Concomitant]
     Active Substance: AZACITIDINE
     Dosage: 55 MILLIGRAM/SQ. METER, Q3WK (5 DAY)
     Route: 065
  3. AZACITIDINE [Concomitant]
     Active Substance: AZACITIDINE
     Dosage: 55 MILLIGRAM/SQ. METER, Q3WK (7 DAY)
     Route: 065
  4. AZACITIDINE [Concomitant]
     Active Substance: AZACITIDINE
     Dosage: 75 MILLIGRAM/SQ. METER, Q3WK (5 DAY)
     Route: 065
  5. AZACITIDINE [Concomitant]
     Active Substance: AZACITIDINE
     Dosage: 75 MILLIGRAM/SQ. METER, Q3WK (7 DAY)
     Route: 065
  6. AZACITIDINE [Concomitant]
     Active Substance: AZACITIDINE
     Dosage: 40 MILLIGRAM/SQ. METER (5 DAY)
     Route: 065

REACTIONS (3)
  - Cytopenia [Unknown]
  - Pneumonia [Unknown]
  - B precursor type acute leukaemia [Unknown]
